FAERS Safety Report 9051462 (Version 1)
Quarter: 2013Q1

REPORT INFORMATION
  Report Type: Spontaneous
  Country: US (occurrence: US)
  Receive Date: 20130206
  Receipt Date: 20130206
  Transmission Date: 20140127
  Serious: No
  Sender: FDA-Public Use
  Company Number: US-ALLERGAN-1212745US

PATIENT
  Age: 65 Year
  Sex: Female

DRUGS (4)
  1. RESTASIS [Suspect]
     Indication: DRY EYE
     Dosage: UNK UNK, BID
  2. REFRESH PLUS [Suspect]
     Indication: DRY EYE
  3. GENTEAL                            /03186201/ [Concomitant]
     Indication: PRODUCT USED FOR UNKNOWN INDICATION
  4. FISH OIL [Concomitant]
     Indication: PRODUCT USED FOR UNKNOWN INDICATION

REACTIONS (3)
  - Skin irritation [Not Recovered/Not Resolved]
  - Skin disorder [Not Recovered/Not Resolved]
  - Eye pain [Not Recovered/Not Resolved]
